FAERS Safety Report 5982626-7 (Version None)
Quarter: 2008Q4

REPORT INFORMATION
  Report Type: 
  Country: None (occurrence: None)
  Receive Date: 20081208
  Receipt Date: 20081201
  Transmission Date: 20090506
  Serious: Yes (Other)
  Sender: FDA-Public Use
  Company Number: PHEH2008US10680

PATIENT
  Sex: Male

DRUGS (1)
  1. MIACALCIN [Suspect]

REACTIONS (3)
  - DISEASE PROGRESSION [None]
  - OSTEOPOROSIS [None]
  - RIB FRACTURE [None]
